FAERS Safety Report 8785805 (Version 1)
Quarter: 2012Q4

REPORT INFORMATION
  Report Type: 
  Country: ES (occurrence: ES)
  Receive Date: 20120914
  Receipt Date: 20120914
  Transmission Date: 20130627
  Serious: Yes (Death, Congenital Anomaly)
  Sender: FDA-Public Use
  Company Number: ES-GLAXOSMITHKLINE-B0829220B

PATIENT

DRUGS (1)
  1. NEOTIGASON [Suspect]
     Indication: PSORIASIS
     Route: 015
     Dates: start: 201112, end: 201205

REACTIONS (3)
  - Trisomy 18 [Unknown]
  - Foetal death [Fatal]
  - Exposure via father [Unknown]
